FAERS Safety Report 18374899 (Version 1)
Quarter: 2020Q4

REPORT INFORMATION
  Report Type: Report from Study
  Country: NL (occurrence: NL)
  Receive Date: 20201013
  Receipt Date: 20201013
  Transmission Date: 20210114
  Serious: Yes (Hospitalization)
  Sender: FDA-Public Use
  Company Number: NL-ROCHE-2687297

PATIENT
  Sex: Female

DRUGS (1)
  1. ATEZOLIZUMAB. [Suspect]
     Active Substance: ATEZOLIZUMAB
     Indication: NEOPLASM
     Dosage: LAST DOSE PRIOR TO EVENT ON 08/SEP/2020
     Route: 042
     Dates: start: 20190806

REACTIONS (1)
  - Endoscopic retrograde cholangiopancreatography [Recovered/Resolved]

NARRATIVE: CASE EVENT DATE: 20200921
